FAERS Safety Report 16731900 (Version 1)
Quarter: 2019Q3

REPORT INFORMATION
  Report Type: Spontaneous
  Country: FR (occurrence: FR)
  Receive Date: 20190822
  Receipt Date: 20190822
  Transmission Date: 20191005
  Serious: Yes (Other)
  Sender: FDA-Public Use
  Company Number: FR-MYLANLABS-2019M1077731

PATIENT
  Age: 67 Year
  Sex: Female
  Weight: 95 kg

DRUGS (5)
  1. IMIPENEM MONOHYDRATE [Interacting]
     Active Substance: IMIPENEM
     Indication: OSTEITIS
     Dosage: 1500 MILLIGRAM, QD
     Route: 041
     Dates: start: 20190226
  2. METFORMIN [Suspect]
     Active Substance: METFORMIN HYDROCHLORIDE
     Indication: TYPE 2 DIABETES MELLITUS
     Dosage: 1500 MILLIGRAM, QD
     Route: 048
  3. REPAGLINIDE. [Interacting]
     Active Substance: REPAGLINIDE
     Indication: TYPE 2 DIABETES MELLITUS
     Dosage: CF COMMENTAIRES
     Route: 048
  4. RIFAMPICINE [Interacting]
     Active Substance: RIFAMPIN
     Indication: OSTEITIS
     Dosage: 900 MILLIGRAM, QD
     Route: 048
     Dates: start: 20190226
  5. LEVOFLOXACIN. [Interacting]
     Active Substance: LEVOFLOXACIN
     Indication: OSTEITIS
     Dosage: 500 MILLIGRAM, QD
     Route: 048
     Dates: start: 20190227

REACTIONS (2)
  - Hypoglycaemia [Recovering/Resolving]
  - Drug interaction [Unknown]

NARRATIVE: CASE EVENT DATE: 20190228
